FAERS Safety Report 8533718 (Version 3)
Quarter: 2012Q4

REPORT INFORMATION
  Report Type: 
  Country: US (occurrence: US)
  Receive Date: 20120427
  Receipt Date: 20121023
  Transmission Date: 20130627
  Serious: Yes (Hospitalization)
  Sender: FDA-Public Use
  Company Number: US-BAYER-2012-039954

PATIENT
  Age: 32 Year
  Sex: Female
  Weight: 92.06 kg

DRUGS (6)
  1. YASMIN [Suspect]
     Indication: CONTRACEPTION
     Dosage: UNK
     Dates: start: 20050523, end: 20050820
  2. LEVOTHYROXINE [Concomitant]
     Dosage: 0.05 mg, UNK
  3. IBUPROFEN [Concomitant]
     Dosage: 600 mg, UNK
  4. VITAMIN E [TOCOPHEROL] [Concomitant]
     Dosage: UNK
  5. MORPHINE [Concomitant]
     Dosage: UNK
  6. ZOFRAN [Concomitant]
     Indication: NAUSEA
     Dosage: UNK

REACTIONS (11)
  - Deep vein thrombosis [None]
  - Pulmonary embolism [None]
  - Injury [None]
  - Pain [None]
  - Emotional distress [None]
  - General physical health deterioration [None]
  - Anxiety [None]
  - Chest pain [None]
  - Back pain [None]
  - Dyspnoea [None]
  - Pain in extremity [None]
